FAERS Safety Report 5438721-4 (Version None)
Quarter: 2007Q3

REPORT INFORMATION
  Report Type: 
  Country: None (occurrence: None)
  Receive Date: 20070831
  Receipt Date: 20070823
  Transmission Date: 20080115
  Serious: No
  Sender: FDA-Public Use
  Company Number: A0674065A

PATIENT

DRUGS (3)
  1. ALLI [Suspect]
  2. MULTI-VITAMIN [Concomitant]
  3. FIBER [Concomitant]
     Route: 048

REACTIONS (2)
  - CONSTIPATION [None]
  - FLATULENCE [None]
